FAERS Safety Report 6485100-7 (Version None)
Quarter: 2009Q4

REPORT INFORMATION
  Report Type: 
  Country: None (occurrence: None)
  Receive Date: 20091209
  Receipt Date: 20091126
  Transmission Date: 20100525
  Serious: Yes (Life-Threatening)
  Sender: FDA-Public Use
  Company Number: JP-ABBOTT-09P-087-0599233-00

PATIENT
  Age: 78 Year
  Sex: Male

DRUGS (4)
  1. LEUPLIN SR FOR INJECTION 11.25 MG [Suspect]
     Indication: PROSTATE CANCER STAGE II
     Route: 058
     Dates: start: 20070702, end: 20080826
  2. CASODEX [Concomitant]
     Indication: PROSTATE CANCER STAGE II
     Dates: end: 20080826
  3. VESICARE [Concomitant]
     Indication: HYPERTONIC BLADDER
     Route: 048
     Dates: end: 20071218
  4. STAYBLA [Concomitant]
     Indication: HYPERTONIC BLADDER
     Route: 048
     Dates: start: 20071218, end: 20080826

REACTIONS (1)
  - LUNG NEOPLASM MALIGNANT [None]
